FAERS Safety Report 19187417 (Version 1)
Quarter: 2021Q2

REPORT INFORMATION
  Report Type: Report from Study
  Country: US (occurrence: US)
  Receive Date: 20210427
  Receipt Date: 20210427
  Transmission Date: 20210717
  Serious: Yes (Death, Other)
  Sender: FDA-Public Use
  Company Number: US-TAKEDA-2021TUS026662

PATIENT
  Age: 85 Year
  Sex: Female

DRUGS (2)
  1. ICATIBANT [Suspect]
     Active Substance: ICATIBANT ACETATE
     Indication: PRODUCT USED FOR UNKNOWN INDICATION
     Dosage: 3 ML/30 MG SYRINGE
     Route: 058
     Dates: start: 20121220, end: 20210420
  2. ICATIBANT [Suspect]
     Active Substance: ICATIBANT ACETATE
     Indication: PRODUCT USED FOR UNKNOWN INDICATION
     Dosage: 3 ML/30 MG SYRINGE
     Route: 058
     Dates: start: 20121220, end: 20210420

REACTIONS (2)
  - Hospice care [None]
  - Death [Fatal]

NARRATIVE: CASE EVENT DATE: 20210412
